FAERS Safety Report 9131126 (Version 3)
Quarter: 2013Q2

REPORT INFORMATION
  Report Type: Report from Study
  Country: US (occurrence: US)
  Receive Date: 20130301
  Receipt Date: 20130410
  Transmission Date: 20140414
  Serious: No
  Sender: FDA-Public Use
  Company Number: US-VERTEX PHARMACEUTICALS INC.-2013-002851

PATIENT
  Age: 51 Year
  Sex: Male
  Weight: 82 kg

DRUGS (3)
  1. VX-950 (TELAPREVIR) [Suspect]
     Indication: HEPATITIS C
     Dosage: 750 MG, TID
     Route: 048
  2. PEGASYS [Suspect]
     Indication: HEPATITIS C
  3. RIBAVIRIN [Suspect]
     Indication: HEPATITIS C
     Dosage: 200 MG, UNK

REACTIONS (7)
  - Influenza like illness [Unknown]
  - Vision blurred [Unknown]
  - Pain in extremity [Recovered/Resolved]
  - Nasal dryness [Unknown]
  - Dry throat [Unknown]
  - Fatigue [Not Recovered/Not Resolved]
  - Pruritus [Unknown]
